FAERS Safety Report 18741581 (Version 1)
Quarter: 2021Q1

REPORT INFORMATION
  Report Type: Report from Study
  Country: US (occurrence: US)
  Receive Date: 20210114
  Receipt Date: 20210114
  Transmission Date: 20210419
  Serious: Yes (Congenital Anomaly)
  Sender: FDA-Public Use
  Company Number: US-TEVA-2020-US-1238619

PATIENT
  Age: 0 Year
  Sex: Male
  Weight: 9.74 kg

DRUGS (23)
  1. PULMICORT FLEXHALER [Concomitant]
     Active Substance: BUDESONIDE
     Indication: ASTHMA
     Route: 064
  2. VALACICLOVIR HYDROCHLORIDE [Concomitant]
     Active Substance: VALACYCLOVIR HYDROCHLORIDE
     Indication: ORAL HERPES
     Route: 064
  3. QUETIAPINE FUMARATE. [Concomitant]
     Active Substance: QUETIAPINE FUMARATE
     Indication: BIPOLAR DISORDER
     Route: 064
  4. LAMICTAL [Concomitant]
     Active Substance: LAMOTRIGINE
     Route: 064
  5. SINGULAIR [Concomitant]
     Active Substance: MONTELUKAST SODIUM
     Indication: SEASONAL ALLERGY
     Route: 064
  6. ACIDOPHILUS PROBIOTIC TABLET [Concomitant]
     Route: 064
  7. BRAINSTRONG PRENATAL [Concomitant]
     Route: 064
  8. LAMICTAL ODT [Concomitant]
     Active Substance: LAMOTRIGINE
     Route: 064
  9. ALBUTEROL SULFATE. [Concomitant]
     Active Substance: ALBUTEROL SULFATE
     Indication: ASTHMA
     Route: 064
  10. VALTREX [Concomitant]
     Active Substance: VALACYCLOVIR HYDROCHLORIDE
     Indication: PROPHYLAXIS
     Route: 064
  11. MONTELUKAST [Concomitant]
     Active Substance: MONTELUKAST SODIUM
     Indication: SEASONAL ALLERGY
     Route: 064
  12. PROAIR HFA [Concomitant]
     Active Substance: ALBUTEROL SULFATE
     Indication: DYSPNOEA
     Route: 064
  13. PROAIR HFA [Concomitant]
     Active Substance: ALBUTEROL SULFATE
     Indication: WHEEZING
  14. QUETIAPINE FUMARATE. [Concomitant]
     Active Substance: QUETIAPINE FUMARATE
     Indication: BIPOLAR DISORDER
     Route: 064
  15. SINGULAIR [Concomitant]
     Active Substance: MONTELUKAST SODIUM
     Indication: ASTHMA
  16. LEVOTHYROXINE SODIUM. [Concomitant]
     Active Substance: LEVOTHYROXINE SODIUM
     Indication: HYPOTHYROIDISM
     Route: 064
  17. LAMOTRIGINE. [Concomitant]
     Active Substance: LAMOTRIGINE
     Indication: BIPOLAR DISORDER
     Route: 064
  18. MONTELUKAST [Concomitant]
     Active Substance: MONTELUKAST SODIUM
     Indication: ASTHMA
  19. ARMODAFINIL CEPHALON [Suspect]
     Active Substance: ARMODAFINIL
     Indication: NARCOLEPSY
     Route: 064
  20. ARMODAFINIL CEPHALON [Suspect]
     Active Substance: ARMODAFINIL
     Indication: SLEEP APNOEA SYNDROME
  21. ESCITALOPRAM [Concomitant]
     Active Substance: ESCITALOPRAM OXALATE
     Indication: ANXIETY
     Route: 064
  22. LACTOBACILLUS [Concomitant]
     Active Substance: LACTOBACILLUS ACIDOPHILUS
     Route: 064
  23. LEXAPRO [Concomitant]
     Active Substance: ESCITALOPRAM OXALATE
     Route: 064

REACTIONS (8)
  - Eczema infantile [Unknown]
  - Strabismus congenital [Unknown]
  - Dacryostenosis congenital [Unknown]
  - Gastrooesophageal reflux disease [Unknown]
  - Plagiocephaly [Unknown]
  - Candida infection [Recovering/Resolving]
  - Exposure via breast milk [Unknown]
  - Foetal exposure during pregnancy [Unknown]

NARRATIVE: CASE EVENT DATE: 2019
